FAERS Safety Report 9179835 (Version 1)
Quarter: 2012Q4

REPORT INFORMATION
  Report Type: 
  Country: US (occurrence: US)
  Receive Date: 20121029
  Receipt Date: 20121029
  Transmission Date: 20130627
  Serious: Yes (Hospitalization, Other)
  Sender: FDA-Public Use
  Company Number: US-009507513-1203USA02851

PATIENT

DRUGS (11)
  1. FOSAMAX [Suspect]
     Indication: OSTEOPENIA
     Dosage: 70 mg, UNK
     Route: 048
     Dates: start: 200306, end: 200802
  2. FOSAMAX [Suspect]
     Indication: TIBIA FRACTURE
  3. FOSAMAX [Suspect]
     Indication: OSTEOPENIA
     Dosage: 70 mg, UNK
     Route: 048
     Dates: start: 200303, end: 201003
  4. FOSAMAX [Suspect]
     Indication: TIBIA FRACTURE
  5. ALENDRONATE SODIUM [Suspect]
     Indication: OSTEOPENIA
     Dosage: 70 mg, UNK
     Route: 048
     Dates: start: 200303
  6. ALENDRONATE SODIUM [Suspect]
     Indication: TIBIA FRACTURE
  7. VITAMINS (UNSPECIFIED) [Concomitant]
     Indication: OSTEOPENIA
     Dosage: one , qd
     Dates: start: 1997
  8. CALCIUM (UNSPECIFIED) [Concomitant]
     Indication: OSTEOPENIA
     Dosage: 1200 mg, qd
     Dates: start: 2003
  9. VITAMIN D (UNSPECIFIED) [Concomitant]
     Indication: OSTEOPENIA
     Dosage: 1000 IU, qd
     Dates: start: 2003
  10. OMEGA-3 MARINE TRIGLYCERIDES [Concomitant]
     Indication: HYPERTENSION
     Dosage: two, bid
  11. OMEGA-3 MARINE TRIGLYCERIDES [Concomitant]
     Indication: HYPERLIPIDAEMIA

REACTIONS (11)
  - Intramedullary rod insertion [Unknown]
  - Femur fracture [Unknown]
  - Tibia fracture [Unknown]
  - Endodontic procedure [Unknown]
  - Low turnover osteopathy [Unknown]
  - Renal cyst [Unknown]
  - Hepatic cyst [Unknown]
  - Ovarian cyst [Unknown]
  - Adnexa uteri mass [Unknown]
  - Arthritis [Unknown]
  - Myalgia [Unknown]
